FAERS Safety Report 25114083 (Version 1)
Quarter: 2025Q1

REPORT INFORMATION
  Report Type: Report from Study
  Country: US (occurrence: US)
  Receive Date: 20250324
  Receipt Date: 20250324
  Transmission Date: 20250409
  Serious: Yes (Other)
  Sender: TEVA
  Company Number: US-TEVA-VS-3312536

PATIENT

DRUGS (3)
  1. CETIRIZINE [Suspect]
     Active Substance: CETIRIZINE HYDROCHLORIDE
     Indication: Allergy prophylaxis
     Route: 048
  2. OXALIPLATIN [Suspect]
     Active Substance: OXALIPLATIN
     Indication: Neoplasm malignant
     Route: 065
  3. RANITIDINE [Concomitant]
     Active Substance: RANITIDINE
     Indication: Gastritis prophylaxis
     Route: 042

REACTIONS (9)
  - Drug hypersensitivity [Unknown]
  - Drug ineffective [Unknown]
  - Abdominal pain [Unknown]
  - Urticaria [Unknown]
  - Pruritus allergic [Unknown]
  - Flushing [Unknown]
  - Back pain [Unknown]
  - Pyrexia [Unknown]
  - Chills [Unknown]
